FAERS Safety Report 6369926-6 (Version None)
Quarter: 2009Q3

REPORT INFORMATION
  Report Type: 
  Country: None (occurrence: None)
  Receive Date: 20090923
  Receipt Date: 20070522
  Transmission Date: 20100115
  Serious: Yes (Other)
  Sender: FDA-Public Use
  Company Number: US-ASTRAZENECA-2006UW11896

PATIENT
  Sex: Female
  Weight: 106.6 kg

DRUGS (13)
  1. SEROQUEL [Suspect]
     Route: 048
     Dates: start: 20060101, end: 20060201
  2. SEROQUEL [Suspect]
     Dosage: 100-600 MG
     Route: 048
     Dates: start: 20031001, end: 20060419
  3. DESYREL [Concomitant]
     Dosage: 50-200 MG
     Route: 048
     Dates: start: 19960701
  4. THORAZINE [Concomitant]
     Dosage: 50-200 MG
     Route: 048
     Dates: start: 19960812
  5. ZYPREXA [Concomitant]
     Dosage: 5-20 MG
     Route: 048
     Dates: start: 20021112, end: 20031001
  6. ZYPREXA [Concomitant]
     Dates: end: 20050215
  7. GEODON [Concomitant]
     Dosage: 20-80  MG
     Dates: start: 20021112, end: 20050215
  8. NEURONTIN [Concomitant]
     Dosage: 600-800 MG
     Dates: start: 20030216
  9. BENADRYL [Concomitant]
     Indication: INSOMNIA
     Route: 048
     Dates: start: 20050215
  10. PAXIL [Concomitant]
     Indication: DEPRESSION
     Route: 048
     Dates: start: 20050215
  11. PAXIL [Concomitant]
     Indication: ANXIETY
     Route: 048
     Dates: start: 20050215
  12. COGENTIN [Concomitant]
     Dosage: 1-2 MG
     Dates: start: 19960701
  13. THIOTHIXENE [Concomitant]
     Indication: PSYCHOTIC DISORDER
     Route: 048
     Dates: start: 20050215

REACTIONS (2)
  - DIABETES MELLITUS [None]
  - PANCREATITIS [None]
